FAERS Safety Report 9230858 (Version 1)
Quarter: 2013Q2

REPORT INFORMATION
  Report Type: Spontaneous
  Country: US (occurrence: US)
  Receive Date: 20130415
  Receipt Date: 20130415
  Transmission Date: 20140414
  Serious: Yes (Other)
  Sender: FDA-Public Use
  Company Number: US-ELI_LILLY_AND_COMPANY-US201304003569

PATIENT
  Sex: 0

DRUGS (2)
  1. PEMETREXED [Suspect]
     Indication: NON-SMALL CELL LUNG CANCER METASTATIC
     Dosage: 500 MG/M2, OTHER
     Route: 042
  2. ITRACONAZOLE [Concomitant]
     Dosage: 200 MG, QD

REACTIONS (1)
  - Tumour haemorrhage [Unknown]
